FAERS Safety Report 8450312-X (Version None)
Quarter: 2012Q2

REPORT INFORMATION
  Report Type: 
  Country: None (occurrence: None)
  Receive Date: 20120614
  Receipt Date: 20120614
  Transmission Date: 20120825
  Serious: Yes (Life-Threatening)
  Sender: FDA-Public Use
  Company Number: None

PATIENT
  Age: 70 Year
  Sex: Female
  Weight: 92 kg

DRUGS (2)
  1. LISINOPRIL [Suspect]
     Indication: HYPERTENSION
     Dates: start: 20110101, end: 20120606
  2. LISINOPRIL [Suspect]
     Indication: CARDIAC FAILURE CONGESTIVE
     Dates: start: 20110101, end: 20120606

REACTIONS (5)
  - TONSILLAR DISORDER [None]
  - SWOLLEN TONGUE [None]
  - SPEECH DISORDER [None]
  - PHARYNGEAL OEDEMA [None]
  - OEDEMA [None]
